FAERS Safety Report 9222369 (Version 1)
Quarter: 2013Q2

REPORT INFORMATION
  Report Type: Spontaneous
  Country: US (occurrence: US)
  Receive Date: 20130410
  Receipt Date: 20130410
  Transmission Date: 20140414
  Serious: Yes (Hospitalization, Other)
  Sender: FDA-Public Use
  Company Number: US-ELI_LILLY_AND_COMPANY-US201304000299

PATIENT
  Sex: Male

DRUGS (3)
  1. CYMBALTA [Suspect]
     Dosage: 30 MG, QD
     Dates: start: 2007
  2. CYMBALTA [Suspect]
     Dosage: 60 MG, QD
  3. CYMBALTA [Suspect]
     Dosage: 90 MG, QD
     Dates: end: 2010

REACTIONS (7)
  - Mental disorder [Unknown]
  - Weight increased [Unknown]
  - Mood swings [Unknown]
  - Feeling abnormal [Unknown]
  - Sleep-related eating disorder [Unknown]
  - Somnambulism [Unknown]
  - Hypochondriasis [Unknown]
